FAERS Safety Report 9603534 (Version 1)
Quarter: 2013Q4

REPORT INFORMATION
  Report Type: Spontaneous
  Country: US (occurrence: US)
  Receive Date: 20131007
  Receipt Date: 20131007
  Transmission Date: 20140711
  Serious: No
  Sender: FDA-Public Use
  Company Number: US-PFIZER INC-2013284934

PATIENT
  Sex: 0

DRUGS (2)
  1. LYRICA [Suspect]
     Dosage: UNK
  2. GLUCOSAMINE [Suspect]
     Dosage: UNK

REACTIONS (9)
  - Gait disturbance [Unknown]
  - Arthralgia [Unknown]
  - Pain in extremity [Unknown]
  - Joint swelling [Unknown]
  - Local swelling [Unknown]
  - Musculoskeletal pain [Unknown]
  - Libido decreased [Unknown]
  - Fatigue [Unknown]
  - Drug ineffective [Unknown]
